FAERS Safety Report 23653747 (Version 1)
Quarter: 2024Q1

REPORT INFORMATION
  Report Type: Spontaneous
  Country: US (occurrence: US)
  Receive Date: 20240320
  Receipt Date: 20240320
  Transmission Date: 20240409
  Serious: No
  Sender: FDA-Public Use
  Company Number: US-LEX-000200

PATIENT
  Age: 60 Year
  Sex: Male

DRUGS (1)
  1. INPEFA [Suspect]
     Active Substance: SOTAGLIFLOZIN
     Indication: Product used for unknown indication
     Route: 048
     Dates: start: 20240220, end: 20240225

REACTIONS (3)
  - Asthenia [Unknown]
  - Gait inability [Unknown]
  - Dizziness [Unknown]

NARRATIVE: CASE EVENT DATE: 20240201
